FAERS Safety Report 13938286 (Version 1)
Quarter: 2017Q3

REPORT INFORMATION
  Report Type: Spontaneous
  Country: US (occurrence: US)
  Receive Date: 20170905
  Receipt Date: 20170905
  Transmission Date: 20171127
  Serious: Yes (Hospitalization)
  Sender: FDA-Public Use
  Company Number: US-ALLERGAN-1748355US

PATIENT
  Age: 57 Year
  Sex: Male

DRUGS (1)
  1. BOTOX [Suspect]
     Active Substance: ONABOTULINUMTOXINA
     Indication: OESOPHAGEAL ACHALASIA
     Dosage: UNK, SINGLE
     Route: 030

REACTIONS (3)
  - Oesophagobronchial fistula [Recovered/Resolved]
  - Off label use [Unknown]
  - Haemoptysis [Recovered/Resolved]
